FAERS Safety Report 18076389 (Version 2)
Quarter: 2020Q3

REPORT INFORMATION
  Report Type: Spontaneous
  Country: PT (occurrence: PT)
  Receive Date: 20200728
  Receipt Date: 20200813
  Transmission Date: 20201103
  Serious: Yes (Other)
  Sender: FDA-Public Use
  Company Number: PT-TEVA-2020-PT-1805030

PATIENT
  Age: 86 Year
  Sex: Female
  Weight: 44 kg

DRUGS (17)
  1. METOCLOPRAMIDE. [Concomitant]
     Active Substance: METOCLOPRAMIDE
     Dosage: SOS UP TO A MAXIMUM OF 30 MG / DAY
     Route: 042
     Dates: start: 20200329, end: 20200409
  2. ENOXAPARIN SODIUM. [Concomitant]
     Active Substance: ENOXAPARIN SODIUM
     Dosage: 40 MG
     Dates: start: 20200325, end: 20200409
  3. PIPERACILINA + TAZOBACTAM [Concomitant]
     Active Substance: PIPERACILLIN SODIUM\TAZOBACTAM SODIUM
     Dosage: 18000 MG
     Route: 042
     Dates: start: 20200330, end: 20200406
  4. AZITHROMYCIN ANHYDROUS. [Concomitant]
     Active Substance: AZITHROMYCIN ANHYDROUS
     Indication: COVID-19
     Dosage: 500 MILLIGRAM DAILY;
     Route: 042
     Dates: start: 20200330, end: 20200330
  5. AMLODIPINE [Concomitant]
     Active Substance: AMLODIPINE BESYLATE
     Dosage: 5 MG
     Route: 048
     Dates: start: 20200325, end: 20200409
  6. AZITHROMYCIN ANHYDROUS. [Suspect]
     Active Substance: AZITHROMYCIN ANHYDROUS
     Indication: COVID-19
     Dosage: 500 MILLIGRAM DAILY;
     Route: 048
     Dates: start: 20200331, end: 20200406
  7. FUROSEMIDE. [Concomitant]
     Active Substance: FUROSEMIDE
     Dosage: 40 MG
     Route: 048
     Dates: start: 20200325, end: 20200325
  8. PANTOPRAZOLE [Concomitant]
     Active Substance: PANTOPRAZOLE
     Dosage: 20 MG
     Route: 048
     Dates: start: 20200325, end: 20200409
  9. LOSARTAN AND HYDROCHLOROTHIAZIDE [Concomitant]
     Active Substance: HYDROCHLOROTHIAZIDE\LOSARTAN POTASSIUM
     Dosage: 1 DOSAGE FORMS
     Route: 048
     Dates: start: 20200325, end: 20200409
  10. POTASSIUM CHLORIDE. [Concomitant]
     Active Substance: POTASSIUM CHLORIDE
     Dosage: 1200 MG
     Route: 048
     Dates: start: 20200325, end: 20200326
  11. ESCITALOPRAM [Concomitant]
     Active Substance: ESCITALOPRAM OXALATE
     Dosage: 10 MG
     Route: 048
     Dates: start: 20200325, end: 20200325
  12. BROMAZEPAM [Concomitant]
     Active Substance: BROMAZEPAM
     Dosage: SOS UP TO 1.5 MG / DAY
     Route: 048
     Dates: start: 20200324, end: 20200409
  13. ACETYLSALICYLIC ACID [Concomitant]
     Active Substance: ASPIRIN
     Dosage: 100 MG
     Route: 048
     Dates: start: 20200325, end: 20200409
  14. GABAPENTIN. [Concomitant]
     Active Substance: GABAPENTIN
     Dosage: 200 MG
     Route: 048
     Dates: start: 20200325, end: 20200409
  15. PLAQUINOL [Suspect]
     Active Substance: HYDROXYCHLOROQUINE SULFATE
     Indication: COVID-19
     Dosage: 400MG 12 / 12H IN D0 AND THEN 200MG 12 / 12H
     Route: 048
     Dates: start: 20200325, end: 20200404
  16. POTASSIUM CHLORIDE. [Concomitant]
     Active Substance: POTASSIUM CHLORIDE
     Dosage: 40 MILLIEQUIVALENTS
     Route: 042
     Dates: start: 20200325, end: 20200326
  17. PARACETAMOL [Concomitant]
     Active Substance: ACETAMINOPHEN
     Dosage: SOS
     Route: 042
     Dates: start: 20200329, end: 20200409

REACTIONS (3)
  - COVID-19 treatment [Unknown]
  - Cholestasis [Recovered/Resolved]
  - Nausea [Recovered/Resolved]

NARRATIVE: CASE EVENT DATE: 20200325
